FAERS Safety Report 8798311 (Version 2)
Quarter: 2015Q2

REPORT INFORMATION
  Report Type: Report from Study
  Country: US (occurrence: US)
  Receive Date: 20120920
  Receipt Date: 20150629
  Transmission Date: 20150821
  Serious: Yes (Death)
  Sender: FDA-Public Use
  Company Number: US-ROCHE-1125667

PATIENT
  Age: 59 Year
  Sex: Female
  Weight: 93 kg

DRUGS (16)
  1. DECADRON [Concomitant]
     Active Substance: DEXAMETHASONE
     Route: 048
  2. TEGRETOL [Concomitant]
     Active Substance: CARBAMAZEPINE
  3. AVASTIN [Suspect]
     Active Substance: BEVACIZUMAB
     Indication: BRAIN NEOPLASM MALIGNANT
     Route: 042
     Dates: start: 20070409
  4. DILANTIN [Concomitant]
     Active Substance: PHENYTOIN
     Route: 048
  5. KEPPRA [Concomitant]
     Active Substance: LEVETIRACETAM
  6. DECADRON [Concomitant]
     Active Substance: DEXAMETHASONE
     Route: 042
  7. CAMPTOSAR [Concomitant]
     Active Substance: IRINOTECAN HYDROCHLORIDE
     Route: 042
  8. AVONEX [Concomitant]
     Active Substance: INTERFERON BETA-1A
     Route: 065
  9. DECADRON [Concomitant]
     Active Substance: DEXAMETHASONE
     Route: 065
  10. PROTONIX (OMEPRAZOLE) [Concomitant]
  11. KLONOPIN [Concomitant]
     Active Substance: CLONAZEPAM
  12. ATIVAN [Concomitant]
     Active Substance: LORAZEPAM
  13. ATROPINE [Concomitant]
     Active Substance: ATROPINE
     Route: 042
  14. BENADRYL [Concomitant]
     Active Substance: DIPHENHYDRAMINE HYDROCHLORIDE
  15. DECADRON [Concomitant]
     Active Substance: DEXAMETHASONE
     Route: 065
  16. ZOFRAN [Concomitant]
     Active Substance: ONDANSETRON HYDROCHLORIDE
     Route: 042

REACTIONS (9)
  - Fatigue [Unknown]
  - Off label use [Unknown]
  - Central nervous system lesion [Unknown]
  - Death [Fatal]
  - Oedema peripheral [Unknown]
  - Moaning [Unknown]
  - Deep vein thrombosis [Unknown]
  - Heart rate increased [Unknown]
  - Seizure [Unknown]

NARRATIVE: CASE EVENT DATE: 20070908
